FAERS Safety Report 21114776 (Version 3)
Quarter: 2022Q4

REPORT INFORMATION
  Report Type: Report from Study
  Country: ES (occurrence: ES)
  Receive Date: 20220721
  Receipt Date: 20221013
  Transmission Date: 20230113
  Serious: Yes (Life-Threatening, Hospitalization, Other)
  Sender: FDA-Public Use
  Company Number: ES-BRISTOL-MYERS SQUIBB COMPANY-2022-077442

PATIENT
  Age: 21 Year
  Sex: Male
  Weight: 101.90 kg

DRUGS (13)
  1. BRENTUXIMAB VEDOTIN [Suspect]
     Active Substance: BRENTUXIMAB VEDOTIN
     Indication: Hodgkin^s disease
     Route: 042
     Dates: start: 20220504, end: 20220615
  2. BRENTUXIMAB VEDOTIN [Suspect]
     Active Substance: BRENTUXIMAB VEDOTIN
  3. DACARBAZINE [Suspect]
     Active Substance: DACARBAZINE
     Indication: Hodgkin^s disease
     Dosage: 5 DOSES EACH (375 MG/M2), ON DAYS 1 AND 15 OF EVERY 28-DAY CYCLE (IV INFUSION)?MOST RECENT DOSE ON 2
     Route: 042
     Dates: start: 20220504, end: 20220629
  4. DOXORUBICIN HYDROCHLORIDE [Suspect]
     Active Substance: DOXORUBICIN HYDROCHLORIDE
     Indication: Hodgkin^s disease
     Dosage: 5 DOSES EACH (25 MG/M2), ON DAYS 1 AND 15 OF EVERY 28-DAY CYCLE (IV INFUSION)?MOST RECENT DOSE ON 29
     Route: 042
     Dates: start: 20220504, end: 20220629
  5. SULFAMETHOXAZOLE\TRIMETHOPRIM [Suspect]
     Active Substance: SULFAMETHOXAZOLE\TRIMETHOPRIM
     Indication: Pneumocystis jirovecii infection
     Dosage: SEPTRIN FORTE?UNK?AS OF 11-JUL-2022, CONTINUED TO BE TREATED WITH SEPTRIN FORTE (DUE TO PREVIOUS PNE
     Route: 065
     Dates: start: 20220705
  6. PIPERACILLIN SODIUM\TAZOBACTAM SODIUM [Concomitant]
     Active Substance: PIPERACILLIN SODIUM\TAZOBACTAM SODIUM
     Indication: Product used for unknown indication
     Route: 065
     Dates: start: 20220711
  7. PIPERACILLIN SODIUM\TAZOBACTAM SODIUM [Concomitant]
     Active Substance: PIPERACILLIN SODIUM\TAZOBACTAM SODIUM
  8. SULFAMETHOXAZOLE\TRIMETHOPRIM [Concomitant]
     Active Substance: SULFAMETHOXAZOLE\TRIMETHOPRIM
     Indication: Product used for unknown indication
     Route: 065
     Dates: start: 20220705
  9. FLUCONAZOLE [Concomitant]
     Active Substance: FLUCONAZOLE
     Indication: Product used for unknown indication
     Dosage: AS OF 11-JUL-2022, CONTINUED TO BE TREATED WITH FLUCONAZOLE
     Route: 042
     Dates: start: 20220711
  10. FLUCONAZOLE [Concomitant]
     Active Substance: FLUCONAZOLE
  11. MICAFUNGIN [Concomitant]
     Active Substance: MICAFUNGIN
     Indication: Product used for unknown indication
     Route: 065
     Dates: start: 20220712
  12. MICAFUNGIN [Concomitant]
     Active Substance: MICAFUNGIN
  13. ATOVAQUON [Concomitant]
     Indication: Product used for unknown indication
     Dosage: UNK?ONGOING
     Route: 065
     Dates: start: 20220712

REACTIONS (5)
  - Hepatitis fulminant [Recovered/Resolved]
  - Cardiac arrest [Recovered/Resolved]
  - Respiratory tract infection [Not Recovered/Not Resolved]
  - Drug-induced liver injury [Not Recovered/Not Resolved]
  - Procedural haemorrhage [Not Recovered/Not Resolved]

NARRATIVE: CASE EVENT DATE: 20220711
